FAERS Safety Report 23859525 (Version 3)
Quarter: 2025Q3

REPORT INFORMATION
  Report Type: Report from Study
  Country: EG (occurrence: EG)
  Receive Date: 20240515
  Receipt Date: 20250801
  Transmission Date: 20251020
  Serious: Yes (Life-Threatening, Disabling)
  Sender: NOVARTIS
  Company Number: EG-002147023-NVSC2024EG100646

PATIENT
  Age: 62 Year
  Sex: Male
  Weight: 82 kg

DRUGS (6)
  1. ENTRESTO [Suspect]
     Active Substance: SACUBITRIL\VALSARTAN
     Indication: Cardiac failure
     Dosage: 1 DOSAGE FORM, BID
     Route: 048
     Dates: start: 20231026
  2. ENTRESTO [Suspect]
     Active Substance: SACUBITRIL\VALSARTAN
     Dosage: 1 DOSAGE FORM, QD (OFF-LABEL USE)
     Route: 048
  3. ASPIRIN [Concomitant]
     Active Substance: ASPIRIN
     Indication: Anticoagulant therapy
     Dosage: 1 DOSAGE FORM, QD
     Route: 048
  4. NEBIVOLOL HYDROCHLORIDE [Concomitant]
     Active Substance: NEBIVOLOL HYDROCHLORIDE
     Indication: Cardiac disorder
     Dosage: 1 DOSAGE FORM, BID
     Route: 048
     Dates: start: 20231026
  5. EPLERENONE [Concomitant]
     Active Substance: EPLERENONE
     Indication: Cardiac disorder
     Dosage: 1 DOSAGE FORM, QD
     Route: 048
     Dates: start: 20231026
  6. NICOTINE [Concomitant]
     Active Substance: NICOTINE
     Indication: Product used for unknown indication
     Route: 065

REACTIONS (9)
  - Pyrexia [Recovered/Resolved]
  - Dyspnoea [Recovered/Resolved]
  - Fatigue [Recovered/Resolved]
  - Arthralgia [Not Recovered/Not Resolved]
  - Pain in extremity [Not Recovered/Not Resolved]
  - Bone pain [Not Recovered/Not Resolved]
  - Foot deformity [Not Recovered/Not Resolved]
  - Gait disturbance [Unknown]
  - Off label use [Unknown]

NARRATIVE: CASE EVENT DATE: 20231026
